FAERS Safety Report 23709034 (Version 2)
Quarter: 2025Q1

REPORT INFORMATION
  Report Type: Spontaneous
  Country: US (occurrence: US)
  Receive Date: 20240404
  Receipt Date: 20250328
  Transmission Date: 20250409
  Serious: No
  Sender: PFIZER
  Company Number: US-PFIZER INC-202400075539

PATIENT
  Age: 52 Year
  Sex: Female

DRUGS (1)
  1. BOSULIF [Suspect]
     Active Substance: BOSUTINIB MONOHYDRATE
     Dosage: 500 MG TAKE 1 TABLET BY MOUTH DAILY/500 MG- TAKE 1 TABLET DAILY
     Route: 048
     Dates: end: 202502

REACTIONS (4)
  - Influenza [Unknown]
  - Laboratory test abnormal [Unknown]
  - White blood cell count increased [Unknown]
  - Product dose omission issue [Unknown]
